FAERS Safety Report 8620830-X (Version None)
Quarter: 2012Q3

REPORT INFORMATION
  Report Type: 
  Country: None (occurrence: None)
  Receive Date: 20120824
  Receipt Date: 19920323
  Transmission Date: 20120928
  Serious: Yes (Hospitalization)
  Sender: FDA-Public Use
  Company Number: US-ROCHE-1101330

PATIENT
  Sex: Male

DRUGS (4)
  1. ACTIVASE [Suspect]
     Indication: ACUTE MYOCARDIAL INFARCTION
  2. ASA, BABY [Concomitant]
  3. LIDOCAINE [Concomitant]
  4. NITROGLYCERIN [Concomitant]
     Route: 060

REACTIONS (4)
  - CHEST PAIN [None]
  - EXTRASYSTOLES [None]
  - ELECTROCARDIOGRAM ST SEGMENT ELEVATION [None]
  - OROPHARYNGEAL PAIN [None]
